FAERS Safety Report 11756831 (Version 1)
Quarter: 2015Q4

REPORT INFORMATION
  Report Type: Spontaneous
  Country: US (occurrence: US)
  Receive Date: 20151120
  Receipt Date: 20151120
  Transmission Date: 20160304
  Serious: Yes (Hospitalization, Other)
  Sender: FDA-Public Use
  Company Number: US-ALVOGEN-2015-ALVOGEN-019849

PATIENT
  Age: 74 Year
  Sex: Female

DRUGS (1)
  1. PEGYLATED LIPOSOMAL DOXORUBICIN [Suspect]
     Active Substance: DOXORUBICIN
     Indication: LIPOSARCOMA METASTATIC

REACTIONS (2)
  - Toxicity to various agents [Recovered/Resolved]
  - Granulomatous pneumonitis [Recovered/Resolved]
